FAERS Safety Report 5491889-6 (Version None)
Quarter: 2007Q4

REPORT INFORMATION
  Report Type: 
  Country: None (occurrence: None)
  Receive Date: 20071019
  Receipt Date: 20071019
  Transmission Date: 20080405
  Serious: Yes (Other)
  Sender: FDA-Public Use
  Company Number: None

PATIENT
  Sex: Female
  Weight: 58.9676 kg

DRUGS (1)
  1. CREST PRO HEALTH NIGHT CREST/PROCTER AND GAMBLE [Suspect]
     Indication: DENTAL DISORDER PROPHYLAXIS
     Dosage: 4 TSP 1X DAILY PO
     Route: 048
     Dates: start: 20071016, end: 20071016

REACTIONS (4)
  - DYSGEUSIA [None]
  - HYPOGEUSIA [None]
  - PHARMACEUTICAL PRODUCT COMPLAINT [None]
  - TONGUE COATED [None]
